FAERS Safety Report 9264256 (Version 1)
Quarter: 2013Q2

REPORT INFORMATION
  Report Type: Spontaneous
  Country: FR (occurrence: FR)
  Receive Date: 20130430
  Receipt Date: 20130430
  Transmission Date: 20140414
  Serious: Yes (Hospitalization)
  Sender: FDA-Public Use
  Company Number: PHHY2013FR041685

PATIENT
  Age: 86 Year
  Sex: Female

DRUGS (10)
  1. LOXEN LP [Suspect]
     Indication: HYPERTENSION
     Dosage: 50 MG, DAILY
     Route: 048
     Dates: end: 20120613
  2. FUROSEMIDE [Suspect]
     Indication: HYPERTENSION
     Dosage: 40 MG, DAILY
     Route: 048
     Dates: end: 20120613
  3. MEDIATENSYL [Suspect]
     Indication: HYPERTENSION
     Dosage: 60 MG, BID
     Route: 048
     Dates: end: 20120613
  4. LEVOTHYROX [Concomitant]
     Dosage: 50 UG, DAILY
     Route: 048
  5. EXELON [Concomitant]
     Indication: DEMENTIA ALZHEIMER^S TYPE
     Dosage: 9.5 ?G/24 H
     Route: 062
     Dates: start: 201006, end: 20120613
  6. DIFFU K [Concomitant]
     Dosage: 600 MG, DAILY
     Route: 048
  7. PREVISCAN [Concomitant]
     Dosage: 20 MG, DAILY
     Route: 048
     Dates: end: 20120617
  8. TANGANIL [Concomitant]
     Dosage: 500 MG, DAILY
     Route: 048
     Dates: end: 20120613
  9. LIPANTHYL [Concomitant]
     Dosage: 145 MG DAILY
     Route: 048
     Dates: end: 20120613
  10. PIASCLEDINE [Concomitant]
     Dosage: 300 MG, DAILY
     Route: 048
     Dates: end: 20120613

REACTIONS (3)
  - Renal failure [Recovered/Resolved]
  - Hypokalaemia [Recovered/Resolved]
  - Hypotension [Recovered/Resolved]
